FAERS Safety Report 15504531 (Version 1)
Quarter: 2018Q4

REPORT INFORMATION
  Report Type: Spontaneous
  Country: US (occurrence: US)
  Receive Date: 20181009
  Receipt Date: 20181009
  Transmission Date: 20190205
  Serious: Yes (Disabling)
  Sender: FDA-Public Use
  Company Number: None

PATIENT
  Age: 30 Year
  Sex: Female
  Weight: 65.25 kg

DRUGS (5)
  1. BUPROPRION SR 100MG [Suspect]
     Active Substance: BUPROPION
     Indication: MAJOR DEPRESSION
     Dosage: ?          QUANTITY:1 TABLET(S);?
     Route: 048
  2. SERTRALINE [Concomitant]
     Active Substance: SERTRALINE HYDROCHLORIDE
  3. BUSPAR [Concomitant]
     Active Substance: BUSPIRONE HYDROCHLORIDE
  4. IRON SUPPLEMENT [Concomitant]
     Active Substance: IRON
  5. NEXPLANON [Concomitant]
     Active Substance: ETONOGESTREL

REACTIONS (3)
  - Product substitution issue [None]
  - Depression [None]
  - Treatment failure [None]

NARRATIVE: CASE EVENT DATE: 20160715
